FAERS Safety Report 10559072 (Version 1)
Quarter: 2014Q4

REPORT INFORMATION
  Report Type: Spontaneous
  Country: DE (occurrence: DE)
  Receive Date: 20141103
  Receipt Date: 20141103
  Transmission Date: 20150529
  Serious: Yes (Other)
  Sender: FDA-Public Use
  Company Number: DE-DRREDDYS-GER/GER/14/0043900

PATIENT
  Age: 79 Year
  Sex: Female
  Weight: 79 kg

DRUGS (5)
  1. CIPROBETA 500 MG FILMTABLETTEN [Suspect]
     Active Substance: CIPROFLOXACIN
     Indication: URINARY TRACT INFECTION
     Route: 048
     Dates: start: 20140918, end: 20140921
  2. CANDESARTAN RATIO 32/12,5 [Concomitant]
     Active Substance: CANDESARTAN
     Indication: HYPERTENSION
  3. LERCANIDIPIN OMNIAPHARM 20 MG [Concomitant]
     Indication: HYPERTENSION
  4. BISOHEXAL 10 MG [Concomitant]
     Indication: HYPERTENSION
  5. DEKRISTOL [Concomitant]
     Active Substance: CHOLECALCIFEROL
     Indication: PRODUCT USED FOR UNKNOWN INDICATION

REACTIONS (3)
  - Suffocation feeling [Recovered/Resolved]
  - Fear [None]
  - Dyspnoea [Recovered/Resolved]

NARRATIVE: CASE EVENT DATE: 20140921
